FAERS Safety Report 8223363-8 (Version None)
Quarter: 2012Q1

REPORT INFORMATION
  Report Type: 
  Country: None (occurrence: None)
  Receive Date: 20120321
  Receipt Date: 20120308
  Transmission Date: 20120608
  Serious: Yes (Other)
  Sender: FDA-Public Use
  Company Number: US-CELGENEUS-163-22393-12030974

PATIENT

DRUGS (1)
  1. ISTODAX [Suspect]
     Route: 065

REACTIONS (1)
  - INJECTION SITE EXTRAVASATION [None]
